FAERS Safety Report 21887257 (Version 1)
Quarter: 2023Q1

REPORT INFORMATION
  Report Type: Spontaneous
  Country: GB (occurrence: GB)
  Receive Date: 20230119
  Receipt Date: 20230119
  Transmission Date: 20230418
  Serious: Yes (Hospitalization, Other)
  Sender: FDA-Public Use
  Company Number: None

PATIENT
  Age: 77 Year
  Sex: Female
  Weight: 70 kg

DRUGS (42)
  1. METRONIDAZOLE [Suspect]
     Active Substance: METRONIDAZOLE
     Dosage: UNK
     Route: 065
     Dates: start: 20220204, end: 20220204
  2. ATEZOLIZUMAB [Suspect]
     Active Substance: ATEZOLIZUMAB
     Indication: Small cell lung cancer extensive stage
     Dosage: 1200 MILLIGRAMS (MG)
     Route: 042
     Dates: start: 20211230
  3. AMOXICILLIN\CLAVULANATE POTASSIUM [Suspect]
     Active Substance: AMOXICILLIN\CLAVULANATE POTASSIUM
     Dosage: 1 GRAMS
     Route: 065
     Dates: start: 20220731, end: 20220801
  4. AMOXICILLIN\CLAVULANATE POTASSIUM [Suspect]
     Active Substance: AMOXICILLIN\CLAVULANATE POTASSIUM
     Dosage: UNK
     Route: 065
     Dates: start: 20220204, end: 20220204
  5. AMOXICILLIN\CLAVULANATE POTASSIUM [Suspect]
     Active Substance: AMOXICILLIN\CLAVULANATE POTASSIUM
     Dosage: 1 TIMES IN 4 DAYS
     Route: 065
     Dates: start: 20220727, end: 20220731
  6. CARBOPLATIN [Suspect]
     Active Substance: CARBOPLATIN
     Indication: Small cell lung cancer extensive stage
     Dosage: 300 MILLIGRAMS (MG)
     Route: 042
     Dates: start: 20211230
  7. ETOPOSIDE [Suspect]
     Active Substance: ETOPOSIDE
     Indication: Small cell lung cancer extensive stage
     Dosage: 132 MILLIGRAMS (MG)
     Route: 042
     Dates: start: 20211230
  8. ETOPOSIDE [Suspect]
     Active Substance: ETOPOSIDE
     Dosage: 200 MILLIGRAMS (MG)
     Route: 048
     Dates: start: 20211231
  9. GENTAMICIN [Suspect]
     Active Substance: GENTAMICIN
     Dosage: 350 MILLIGRAMS (MG)
     Route: 042
     Dates: start: 20220204, end: 20220204
  10. GENTAMICIN [Suspect]
     Active Substance: GENTAMICIN
     Dosage: 1 TIME PER 4 DAYS
     Route: 065
     Dates: start: 20220731, end: 20220731
  11. XYLOMETAZOLINE HYDROCHLORIDE [Suspect]
     Active Substance: XYLOMETAZOLINE HYDROCHLORIDE
     Dosage: 3 TIMES IN 1 DAY
     Route: 045
     Dates: start: 20220204
  12. ALLOPURINOL [Concomitant]
     Active Substance: ALLOPURINOL
     Dosage: 300 MILLIGRAMS (MG), DAILY
     Route: 065
  13. CHLORTHALIDONE [Concomitant]
     Active Substance: CHLORTHALIDONE
     Dosage: 50 MILLIGRAMS (MG)
     Route: 065
     Dates: end: 20220209
  14. CHLORTHALIDONE [Concomitant]
     Active Substance: CHLORTHALIDONE
     Dosage: UNK
     Route: 065
     Dates: start: 20220511
  15. AMOXICILLIN\CLAVULANATE POTASSIUM [Concomitant]
     Active Substance: AMOXICILLIN\CLAVULANATE POTASSIUM
     Dosage: 500 MG-1253 TIMES PER DAY
     Route: 065
     Dates: start: 20220210
  16. DEXAMETHASONE [Concomitant]
     Active Substance: DEXAMETHASONE
     Dosage: 8 MILLIGRAMS (MG)
     Route: 065
     Dates: start: 20220121, end: 20220121
  17. DEXAMETHASONE [Concomitant]
     Active Substance: DEXAMETHASONE
     Dosage: 667.833333 MG - TOTAL DOSE WITHIN THIS THERAPY 1 TIME PER DAY, 4 MILLIGRAMS (MG)
     Route: 065
     Dates: start: 20220616
  18. DEXAMETHASONE [Concomitant]
     Active Substance: DEXAMETHASONE
     Dosage: 8 MILLIGRAMS (MG)
     Route: 065
     Dates: start: 20220221, end: 20220221
  19. DEXAMETHASONE [Concomitant]
     Active Substance: DEXAMETHASONE
     Dosage: 8 MILLIGRAMS (MG)
     Route: 065
     Dates: start: 20211230, end: 20211230
  20. DEXAMETHASONE [Concomitant]
     Active Substance: DEXAMETHASONE
     Dosage: 8 MILLIGRAMS (MG)
     Route: 065
     Dates: start: 20220314, end: 20220314
  21. DOMPERIDONE [Concomitant]
     Active Substance: DOMPERIDONE
     Dosage: 1 TIME 1 AS NECESSARY
     Route: 065
     Dates: start: 202201
  22. DOMPERIDONE [Concomitant]
     Active Substance: DOMPERIDONE
     Dosage: UNK
     Route: 065
     Dates: start: 202201
  23. ENOXAPARIN [Concomitant]
     Active Substance: ENOXAPARIN
     Dosage: QD
     Route: 065
     Dates: start: 20220731, end: 20220731
  24. GAVISCON [Concomitant]
     Active Substance: ALUMINUM HYDROXIDE\MAGNESIUM CARBONATE
     Dosage: UNK
     Route: 065
  25. GLUCOPHAGE [Concomitant]
     Active Substance: METFORMIN HYDROCHLORIDE
     Dosage: 500MG OD1 TIME 1 AS NECESSARY
     Route: 065
     Dates: end: 20220206
  26. GLUCOPHAGE [Concomitant]
     Active Substance: METFORMIN HYDROCHLORIDE
     Dosage: 500 MILLIGRAMS (MG) AS NECESSARY
     Route: 065
     Dates: end: 20220209
  27. HUMALOG [Concomitant]
     Active Substance: INSULIN LISPRO
     Dosage: 100 UNITS/ML SOLUTION, DAILY1 TIME AS NECESSARY
     Route: 065
  28. HUMALOG [Concomitant]
     Active Substance: INSULIN LISPRO
     Dosage: 100UNITS/ML SUSPENSION FOR INJECTION
     Route: 065
  29. ISOPHANE INSULIN [Concomitant]
     Active Substance: INSULIN NOS
     Dosage: 10 UNITS1 TIME PER 4 DAYS
     Route: 058
     Dates: start: 20220731, end: 20220731
  30. LEVOTHYROXINE [Concomitant]
     Active Substance: LEVOTHYROXINE
     Dosage: 1 TIME 1 AS NECESSARY
     Route: 065
  31. NYSTATIN [Concomitant]
     Active Substance: NYSTATIN
     Dosage: 1 TIME 1 AS NECESSARY
     Route: 065
     Dates: start: 20220101, end: 20220119
  32. ONDANSETRON [Concomitant]
     Active Substance: ONDANSETRON
     Dosage: 8 MILLIGRAMS (MG)
     Route: 065
     Dates: start: 20220314, end: 20220314
  33. ONDANSETRON [Concomitant]
     Active Substance: ONDANSETRON
     Dosage: 8 MILLIGRAMS (MG)
     Route: 065
     Dates: start: 20220121, end: 20220121
  34. ONDANSETRON [Concomitant]
     Active Substance: ONDANSETRON
     Dosage: 8 MILLIGRAMS (MG)
     Route: 065
     Dates: start: 20211230, end: 20211230
  35. ONDANSETRON [Concomitant]
     Active Substance: ONDANSETRON
     Dosage: 8 MILLIGRAMS (MG)
     Route: 065
     Dates: start: 20220221, end: 20220221
  36. OXYCODONE [Concomitant]
     Active Substance: OXYCODONE
     Dosage: 2.5 MILLILITRES (ML), AS NECESSARY
     Route: 065
     Dates: start: 20220511
  37. PANTOPRAZOLE [Concomitant]
     Active Substance: PANTOPRAZOLE
     Dosage: 20 MILLIGRAMS (MG), BID
     Route: 065
  38. ACETAMINOPHEN [Concomitant]
     Active Substance: ACETAMINOPHEN
     Dosage: 500 MILLIGRAMS (MG)
     Route: 065
     Dates: start: 20220204, end: 20220204
  39. ACETAMINOPHEN [Concomitant]
     Active Substance: ACETAMINOPHEN
     Dosage: 1000 MILLIGRAMS (MG), DAILY
     Route: 065
     Dates: start: 202112
  40. ACETAMINOPHEN [Concomitant]
     Active Substance: ACETAMINOPHEN
     Dosage: 1000 MILLIGRAMS (MG)
     Route: 065
     Dates: start: 202112
  41. ACETAMINOPHEN [Concomitant]
     Active Substance: ACETAMINOPHEN
     Dosage: 1000 MILLIGRAMS (MG)
     Route: 065
     Dates: start: 202112
  42. SODIUM PHOSPHATE [Concomitant]
     Active Substance: SODIUM PHOSPHATE
     Dosage: 1 TIME PER 4 DAYS
     Route: 048
     Dates: start: 20220731, end: 20220731

REACTIONS (10)
  - Alopecia [Not Recovered/Not Resolved]
  - Sinusitis [Recovered/Resolved]
  - Fatigue [Recovered/Resolved]
  - Anaemia [Recovered/Resolved]
  - Mucosal inflammation [Recovered/Resolved]
  - COVID-19 [Recovered/Resolved]
  - Thrombocytopenia [Recovered/Resolved]
  - Nausea [Recovering/Resolving]
  - Diarrhoea [Recovered/Resolved]
  - Dyspnoea exertional [Recovered/Resolved]

NARRATIVE: CASE EVENT DATE: 20211231
